FAERS Safety Report 5280149-4 (Version None)
Quarter: 2007Q1

REPORT INFORMATION
  Report Type: 
  Country: None (occurrence: None)
  Receive Date: 20061229
  Receipt Date: 20060727
  Transmission Date: 20070707
  Serious: Yes (Other)
  Sender: FDA-Public Use
  Company Number: 2006UW15191

PATIENT
  Age: 76 Year
  Sex: Male
  Weight: 86.182 kg

DRUGS (5)
  1. CRESTOR [Suspect]
     Indication: BLOOD CHOLESTEROL INCREASED
     Dosage: 10 MG PO
     Route: 048
     Dates: start: 20060701
  2. TRICOR [Concomitant]
  3. FIBERCON [Concomitant]
  4. ASPIRIN [Concomitant]
  5. DOCUSATE SODIUM [Concomitant]

REACTIONS (1)
  - HANGOVER [None]
